FAERS Safety Report 9143673 (Version 1)
Quarter: 2013Q1

REPORT INFORMATION
  Report Type: Spontaneous
  Country: SE (occurrence: SE)
  Receive Date: 20130306
  Receipt Date: 20130306
  Transmission Date: 20140127
  Serious: Yes (Hospitalization)
  Sender: FDA-Public Use
  Company Number: SE-ROCHE-1162090

PATIENT
  Age: 72 Year
  Sex: Female

DRUGS (1)
  1. XELODA [Suspect]
     Indication: COLON CANCER
     Route: 065
     Dates: start: 20121026

REACTIONS (4)
  - Chest discomfort [Unknown]
  - Myocardial infarction [Unknown]
  - Atrial fibrillation [Unknown]
  - Palpitations [Unknown]
